FAERS Safety Report 11943820 (Version 1)
Quarter: 2016Q1

REPORT INFORMATION
  Report Type: Spontaneous
  Country: US (occurrence: US)
  Receive Date: 20160125
  Receipt Date: 20160125
  Transmission Date: 20160526
  Serious: Yes (Other)
  Sender: FDA-Public Use
  Company Number: US-AMGEN-USASP2016007001

PATIENT
  Age: 63 Year
  Sex: Male

DRUGS (5)
  1. NEXIUM [Concomitant]
     Active Substance: ESOMEPRAZOLE MAGNESIUM
     Dosage: UNK
  2. ENBREL [Suspect]
     Active Substance: ETANERCEPT
     Indication: PSORIASIS
     Dosage: 50 MG, QWK
     Route: 058
     Dates: start: 201504, end: 201512
  3. FLECAINIDE [Concomitant]
     Active Substance: FLECAINIDE
     Dosage: UNK
  4. ASPIRIN                            /00002701/ [Concomitant]
     Active Substance: ASPIRIN
     Dosage: UNK
  5. GEMFIBROZIL. [Concomitant]
     Active Substance: GEMFIBROZIL
     Dosage: UNK

REACTIONS (1)
  - Knee arthroplasty [Unknown]

NARRATIVE: CASE EVENT DATE: 20151222
